FAERS Safety Report 24461863 (Version 1)
Quarter: 2024Q4

REPORT INFORMATION
  Report Type: Report from Study
  Country: US (occurrence: US)
  Receive Date: 20241018
  Receipt Date: 20241018
  Transmission Date: 20250115
  Serious: No
  Sender: ROCHE
  Company Number: US-ROCHE-3552323

PATIENT
  Age: 72 Year
  Sex: Female

DRUGS (8)
  1. RITUXAN [Suspect]
     Active Substance: RITUXIMAB
     Indication: Rheumatoid arthritis
     Dosage: EVERY 7, 8 MONTHS OR EVEN A YEAR. 1 DOSE OF 1000MG THEN SECOND?DOSE OF 1000MG 2 WEEKS LATER.
     Route: 042
     Dates: end: 20210610
  2. RITUXAN [Suspect]
     Active Substance: RITUXIMAB
     Dosage: EVERY 7, 8 MONTHS OR EVEN A YEAR. 1 DOSE OF 500MG THEN SECOND DOSE?OF 500MG 2 WEEKS LATER.
     Route: 042
     Dates: start: 2019
  3. PREDNISONE [Suspect]
     Active Substance: PREDNISONE
     Indication: Product used for unknown indication
     Route: 065
  4. PREDNISONE [Suspect]
     Active Substance: PREDNISONE
     Route: 065
  5. RINVOQ [Suspect]
     Active Substance: UPADACITINIB
     Indication: Product used for unknown indication
     Route: 065
  6. METFORMIN [Concomitant]
     Active Substance: METFORMIN HYDROCHLORIDE
  7. OMEPRAZOLE [Concomitant]
     Active Substance: OMEPRAZOLE
  8. TYLENOL [Concomitant]
     Active Substance: ACETAMINOPHEN

REACTIONS (9)
  - Gastrointestinal disorder [Unknown]
  - Malaise [Unknown]
  - Pruritus [Unknown]
  - Cough [Unknown]
  - Lower respiratory tract congestion [Unknown]
  - Nasal congestion [Unknown]
  - Pharyngeal disorder [Unknown]
  - Limb mass [Unknown]
  - Immunodeficiency [Unknown]

NARRATIVE: CASE EVENT DATE: 20210101
